FAERS Safety Report 23561586 (Version 1)
Quarter: 2024Q1

REPORT INFORMATION
  Report Type: Spontaneous
  Country: FR (occurrence: FR)
  Receive Date: 20240225
  Receipt Date: 20240225
  Transmission Date: 20240410
  Serious: Yes (Life-Threatening, Other)
  Sender: FDA-Public Use
  Company Number: FR-AFSSAPS-LY2024000132

PATIENT
  Age: 73 Year
  Sex: Female

DRUGS (5)
  1. CARBOPLATIN [Suspect]
     Active Substance: CARBOPLATIN
     Indication: Ovarian epithelial cancer
     Dosage: UNK UNK, CYCLICAL (- EN 2007, PREMI?RE LIGNE DE TRAITEMENT AVEC CARBOPLATINE TAXOL, SUIVI D^UNE CHIR
     Route: 051
     Dates: start: 2007, end: 2019
  2. GEMCITABINE [Suspect]
     Active Substance: GEMCITABINE
     Indication: Ovarian epithelial cancer
     Dosage: UNK UNK, CYCLICAL ( EN 2007, PREMI?RE LIGNE DE TRAITEMENT AVEC CARBOPLATINE TAXOL, SUIVI D^UNE CHIRU
     Route: 051
     Dates: start: 2016, end: 2016
  3. PACLITAXEL [Suspect]
     Active Substance: PACLITAXEL
     Indication: Ovarian epithelial cancer
     Dosage: UNK UNK, CYCLICAL (- EN 2007, PREMI?RE LIGNE DE TRAITEMENT AVEC CARBOPLATINE TAXOL, SUIVI D^UNE CHIR
     Route: 051
     Dates: start: 2007, end: 2010
  4. DOXORUBICIN HYDROCHLORIDE [Suspect]
     Active Substance: DOXORUBICIN HYDROCHLORIDE
     Indication: Ovarian epithelial cancer
     Dosage: 330 MILLIGRAM/SQ. METER (- EN 2007, PREMI?RE LIGNE DE TRAITEMENT AVEC CARBOPLATINE TAXOL, SUIVI D^UN
     Route: 051
     Dates: start: 2015, end: 2019
  5. ZEJULA [Suspect]
     Active Substance: NIRAPARIB
     Indication: Ovarian epithelial cancer
     Dosage: 200 MILLIGRAM, ONCE A DAY
     Route: 048
     Dates: start: 20191031, end: 20231222

REACTIONS (1)
  - Acute myeloid leukaemia [Not Recovered/Not Resolved]

NARRATIVE: CASE EVENT DATE: 20231222
